FAERS Safety Report 25370260 (Version 1)
Quarter: 2025Q2

REPORT INFORMATION
  Report Type: Spontaneous
  Country: ES (occurrence: ES)
  Receive Date: 20250528
  Receipt Date: 20250528
  Transmission Date: 20250716
  Serious: Yes (Other)
  Sender: BAUSCH AND LOMB
  Company Number: None

PATIENT
  Age: 63 Year
  Sex: Female
  Weight: 62 kg

DRUGS (3)
  1. HYDROCORTISONE [Interacting]
     Active Substance: HYDROCORTISONE
     Indication: Bronchospasm
     Route: 042
     Dates: start: 20250308, end: 20250308
  2. METHYLPREDNISOLONE [Interacting]
     Active Substance: METHYLPREDNISOLONE
     Indication: Bronchospasm
     Route: 042
     Dates: start: 20250308, end: 20250308
  3. PREDNISONE [Interacting]
     Active Substance: PREDNISONE
     Indication: Bronchospasm
     Route: 048
     Dates: start: 20250309, end: 20250312

REACTIONS (2)
  - Hyperglycaemia [Recovered/Resolved]
  - Condition aggravated [Recovered/Resolved]

NARRATIVE: CASE EVENT DATE: 20250309
